FAERS Safety Report 22002991 (Version 1)
Quarter: 2023Q1

REPORT INFORMATION
  Report Type: Spontaneous
  Country: DE (occurrence: DE)
  Receive Date: 20230217
  Receipt Date: 20230217
  Transmission Date: 20230418
  Serious: Yes (Death)
  Sender: FDA-Public Use
  Company Number: DE-GE HEALTHCARE-2023CSU000853

PATIENT
  Sex: Male

DRUGS (3)
  1. IOHEXOL [Suspect]
     Active Substance: IOHEXOL
     Indication: Computerised tomogram abdomen
     Dosage: UNK UNK, SINGLE
     Route: 065
  2. IOHEXOL [Suspect]
     Active Substance: IOHEXOL
     Indication: General physical health deterioration
  3. IOHEXOL [Suspect]
     Active Substance: IOHEXOL
     Indication: Abdominal discomfort

REACTIONS (1)
  - Aortic aneurysm rupture [Fatal]
